FAERS Safety Report 19999545 (Version 2)
Quarter: 2022Q1

REPORT INFORMATION
  Report Type: Spontaneous
  Country: PT (occurrence: None)
  Receive Date: 20211027
  Receipt Date: 20220105
  Transmission Date: 20220423
  Serious: Yes (Death, Hospitalization)
  Sender: FDA-Public Use
  Company Number: PT-ROCHE-2942805

PATIENT
  Sex: Female

DRUGS (10)
  1. ERIVEDGE [Suspect]
     Active Substance: VISMODEGIB
     Indication: Basal cell carcinoma
     Route: 065
     Dates: start: 20210103
  2. CARVEDILOL [Concomitant]
     Active Substance: CARVEDILOL
  3. FUROSEMIDE [Concomitant]
     Active Substance: FUROSEMIDE
  4. LISINOPRIL [Concomitant]
     Active Substance: LISINOPRIL
  5. SPIRONOLACTONE [Concomitant]
     Active Substance: SPIRONOLACTONE
  6. NITRODISC [Concomitant]
     Active Substance: NITROGLYCERIN
  7. ALPRAZOLAM [Concomitant]
     Active Substance: ALPRAZOLAM
  8. FOLIC ACID [Concomitant]
     Active Substance: FOLIC ACID
  9. MAGNESIUM [Concomitant]
     Active Substance: MAGNESIUM
  10. METAMIZOLE MAGNESIUM [Concomitant]
     Active Substance: METAMIZOLE MAGNESIUM

REACTIONS (4)
  - Hyponatraemia [Fatal]
  - Cardiac failure [Fatal]
  - Headache [Unknown]
  - Decreased appetite [Unknown]
